FAERS Safety Report 9335023 (Version 2)
Quarter: 2013Q3

REPORT INFORMATION
  Report Type: Spontaneous
  Country: US (occurrence: US)
  Receive Date: 20130606
  Receipt Date: 20130725
  Transmission Date: 20140515
  Serious: Yes (Disabling, Other)
  Sender: FDA-Public Use
  Company Number: US-PFIZER INC-2013167267

PATIENT
  Age: 40 Year
  Sex: Female
  Weight: 45 kg

DRUGS (3)
  1. GENOTROPIN [Suspect]
     Dosage: 0.4 MG, 1X/DAY
  2. GENOTROPIN [Suspect]
     Dosage: UNK
  3. LEVOTHYROXINE [Concomitant]
     Indication: HYPOTHYROIDISM
     Dosage: 0.075 MG, 1X/DAY

REACTIONS (3)
  - Autoimmune disorder [Not Recovered/Not Resolved]
  - Mental disorder [Not Recovered/Not Resolved]
  - General physical condition abnormal [Not Recovered/Not Resolved]
